FAERS Safety Report 5148053-X (Version None)
Quarter: 2006Q4

REPORT INFORMATION
  Report Type: 
  Country: None (occurrence: None)
  Receive Date: 20060918
  Receipt Date: 20050831
  Transmission Date: 20070319
  Serious: Yes (Other)
  Sender: FDA-Public Use
  Company Number: US-JNJFOC-20050802837

PATIENT
  Age: 20 Year
  Sex: Male
  Weight: 99.7913 kg

DRUGS (1)
  1. TOPAMAX [Suspect]
     Indication: EPILEPSY
     Dosage: SEE IMAGE
     Route: 048
     Dates: start: 20020801

REACTIONS (1)
  - CONVULSION [None]
